FAERS Safety Report 15557947 (Version 2)
Quarter: 2018Q4

REPORT INFORMATION
  Report Type: Spontaneous
  Country: US (occurrence: US)
  Receive Date: 20181027
  Receipt Date: 20181207
  Transmission Date: 20190205
  Serious: Yes (Hospitalization, Other)
  Sender: FDA-Public Use
  Company Number: US-009507513-1810USA010537

PATIENT
  Age: 3 Month
  Sex: Female
  Weight: 3.3 kg

DRUGS (4)
  1. BRIDION [Suspect]
     Active Substance: SUGAMMADEX
     Indication: NEUROMUSCULAR BLOCKADE REVERSAL
     Dosage: 2 MILLIGRAM/KILOGRAM
  2. DEXAMETHASONE. [Suspect]
     Active Substance: DEXAMETHASONE
     Indication: PROPHYLAXIS
     Route: 042
  3. ZEMURON [Suspect]
     Active Substance: ROCURONIUM BROMIDE
     Indication: GENERAL ANAESTHESIA
     Dosage: 0.45 MILLIGRAM/KILOGRAM
  4. SEVOFLURANE. [Suspect]
     Active Substance: SEVOFLURANE
     Indication: GENERAL ANAESTHESIA
     Dosage: 1.5-2.5 %

REACTIONS (9)
  - Crying [Recovering/Resolving]
  - Off label use [Unknown]
  - Agitation [Recovering/Resolving]
  - Bradycardia [Recovering/Resolving]
  - Pain [Recovering/Resolving]
  - Hypoxia [Recovering/Resolving]
  - Increased bronchial secretion [Recovering/Resolving]
  - Negative pressure pulmonary oedema [Recovering/Resolving]
  - Respiratory distress [Recovering/Resolving]
